FAERS Safety Report 9018716 (Version 1)
Quarter: 2013Q1

REPORT INFORMATION
  Report Type: Spontaneous
  Country: SE (occurrence: SE)
  Receive Date: 20130118
  Receipt Date: 20130118
  Transmission Date: 20140127
  Serious: Yes (Death, Other)
  Sender: FDA-Public Use
  Company Number: PHHY2013SE004265

PATIENT
  Age: 91 Year
  Sex: Male

DRUGS (1)
  1. GLIVEC [Suspect]
     Indication: CHRONIC MYELOID LEUKAEMIA
     Dosage: 400 MG, UNK
     Route: 048
     Dates: start: 20120910

REACTIONS (6)
  - Circulatory collapse [Fatal]
  - Skin exfoliation [Unknown]
  - Local swelling [Unknown]
  - Oedema [Unknown]
  - Erythema [Unknown]
  - Rash [Unknown]
